FAERS Safety Report 10045931 (Version 1)
Quarter: 2014Q1

REPORT INFORMATION
  Report Type: Spontaneous
  Country: FR (occurrence: FR)
  Receive Date: 20140330
  Receipt Date: 20140330
  Transmission Date: 20141002
  Serious: Yes (Hospitalization)
  Sender: FDA-Public Use
  Company Number: FR-TEVA-469816ISR

PATIENT
  Age: 68 Year
  Sex: Male

DRUGS (6)
  1. DOXORUBICINE TEVA [Suspect]
     Indication: HODGKIN^S DISEASE
     Dosage: SIX COURSES OF CHEMOTHERAPY (ABVD PROTOCOL)
     Route: 042
     Dates: start: 20120726, end: 20121217
  2. BLEOMYCINE [Suspect]
     Indication: HODGKIN^S DISEASE
     Dosage: SIX COURSES OF CHEMOTHERAPY (ABVD PROTOCOL)
     Route: 042
     Dates: start: 20120726, end: 20121217
  3. VELBE [Suspect]
     Indication: HODGKIN^S DISEASE
     Dosage: SIX COURSES OF CHEMOTHERAPY (ABVD PROTOCOL)
     Route: 042
     Dates: start: 20120726, end: 20121217
  4. DETICENE [Suspect]
     Indication: HODGKIN^S DISEASE
     Dosage: SIX COURSES OF CHEMOTHERAPY (ABVD PROTOCOL)
     Route: 042
     Dates: start: 20120726, end: 20121217
  5. METHYLPREDNISOLONE MYLAN [Suspect]
     Indication: HODGKIN^S DISEASE
     Dosage: SIX COURSES OF CHEMOTHERAPY (ABVD PROTOCOL), AT DAY 1 AND DAY 15
     Route: 042
     Dates: start: 20120726, end: 20121217
  6. INEXIUM [Concomitant]
     Dosage: 20 MILLIGRAM DAILY; LONG-STANDING TREATMENT

REACTIONS (7)
  - Interstitial lung disease [Recovered/Resolved]
  - Dyspnoea [Unknown]
  - General physical health deterioration [Unknown]
  - Weight decreased [Unknown]
  - Asthenia [Unknown]
  - Acute respiratory distress syndrome [Unknown]
  - Pyrexia [Unknown]
